FAERS Safety Report 4283070-3 (Version None)
Quarter: 2004Q1

REPORT INFORMATION
  Report Type: 
  Country: None (occurrence: None)
  Receive Date: 20040129
  Receipt Date: 20040114
  Transmission Date: 20041129
  Serious: Yes (Hospitalization)
  Sender: FDA-Public Use
  Company Number: K200400043

PATIENT
  Age: 34 Year
  Sex: Female
  Weight: 75.7 kg

DRUGS (3)
  1. CYTOMEL TABLETS (LIOTHYRONINE)TABLET, 5MCG [Suspect]
     Indication: HYPOTHYROIDISM
     Dosage: 5 MCG, TID, ORAL
     Route: 048
     Dates: start: 20010101
  2. SYNTHROID [Suspect]
     Indication: HYPOTHYROIDISM
     Dosage: SEE IMAGE
     Route: 048
     Dates: start: 19990101, end: 20031001
  3. ALDADCTONE (SPIRONOLACTONE) [Concomitant]

REACTIONS (9)
  - ACNE [None]
  - ALOPECIA [None]
  - BREAST DISCHARGE [None]
  - ECZEMA [None]
  - FATIGUE [None]
  - HYPOTHYROIDISM [None]
  - LOSS OF CONSCIOUSNESS [None]
  - OPERATIVE HAEMORRHAGE [None]
  - RUPTURED ECTOPIC PREGNANCY [None]
